FAERS Safety Report 13841015 (Version 4)
Quarter: 2018Q1

REPORT INFORMATION
  Report Type: Spontaneous
  Country: JP (occurrence: JP)
  Receive Date: 20170807
  Receipt Date: 20180102
  Transmission Date: 20180508
  Serious: Yes (Death, Other)
  Sender: FDA-Public Use
  Company Number: JP-009507513-1708JPN000029J

PATIENT
  Age: 68 Year
  Sex: Male
  Weight: 45 kg

DRUGS (6)
  1. BARACLUDE [Concomitant]
     Active Substance: ENTECAVIR
     Dosage: 0.5 MG, QD
     Route: 048
     Dates: end: 20170305
  2. PREDONINE [Concomitant]
     Active Substance: PREDNISOLONE
     Dosage: 5.0 MG, QD
     Route: 048
     Dates: end: 20170312
  3. RHEUMATREX [Concomitant]
     Active Substance: METHOTREXATE SODIUM
     Dosage: 2.0 MG, BID
     Route: 048
     Dates: end: 20170312
  4. THEOPHYLLINE [Concomitant]
     Active Substance: THEOPHYLLINE ANHYDROUS
     Dosage: 100 MG, QD
     Route: 048
     Dates: end: 20170312
  5. ONETRAM [Concomitant]
     Active Substance: TRAMADOL HYDROCHLORIDE
     Indication: LUNG ADENOCARCINOMA
     Dosage: 200.0 MG, QD
     Route: 048
     Dates: end: 20170301
  6. KEYTRUDA [Suspect]
     Active Substance: PEMBROLIZUMAB
     Indication: LUNG ADENOCARCINOMA
     Dosage: 200 MG, Q3W
     Route: 041
     Dates: start: 20170209, end: 20170209

REACTIONS (2)
  - Fall [Recovered/Resolved]
  - Malignant neoplasm progression [Fatal]

NARRATIVE: CASE EVENT DATE: 20170215
